FAERS Safety Report 15974432 (Version 2)
Quarter: 2019Q1

REPORT INFORMATION
  Report Type: Spontaneous
  Country: BR (occurrence: BR)
  Receive Date: 20190218
  Receipt Date: 20190228
  Transmission Date: 20190418
  Serious: Yes (Disabling, Other)
  Sender: FDA-Public Use
  Company Number: BR-SA-2019SA040349

PATIENT
  Sex: Female

DRUGS (1)
  1. MYOZYME [Suspect]
     Active Substance: ALGLUCOSIDASE ALFA
     Indication: GLYCOGEN STORAGE DISEASE TYPE II
     Dosage: 13 DF, QOW
     Route: 041
     Dates: start: 2011

REACTIONS (7)
  - Muscle atrophy [Unknown]
  - Immunodeficiency [Unknown]
  - Urinary tract infection [Unknown]
  - Tracheostomy infection [Unknown]
  - Musculoskeletal disorder [Unknown]
  - Tracheostomy [Unknown]
  - General physical health deterioration [Unknown]

NARRATIVE: CASE EVENT DATE: 2017
